FAERS Safety Report 7859100-6 (Version None)
Quarter: 2011Q4

REPORT INFORMATION
  Report Type: 
  Country: None (occurrence: None)
  Receive Date: 20111027
  Receipt Date: 20111018
  Transmission Date: 20120403
  Serious: Yes (Other)
  Sender: FDA-Public Use
  Company Number: PHEH2011US06008

PATIENT
  Sex: Female
  Weight: 91.61 kg

DRUGS (3)
  1. GILENYA [Suspect]
     Indication: MULTIPLE SCLEROSIS
     Dosage: 0.5 MG, DAILY
     Route: 048
     Dates: start: 20110701, end: 20110929
  2. AMITRIPTYLINE HCL [Concomitant]
     Dosage: 20 MG, QHS
     Route: 048
  3. GILENYA [Suspect]
     Dosage: 0.5 MG, DAILY
     Route: 048
     Dates: start: 20111013

REACTIONS (9)
  - MOUTH ULCERATION [None]
  - LYMPHOCYTE COUNT DECREASED [None]
  - CHEST PAIN [None]
  - BLOOD ALBUMIN DECREASED [None]
  - PERICARDITIS [None]
  - DYSPNOEA [None]
  - NEUTROPHIL PERCENTAGE INCREASED [None]
  - ALANINE AMINOTRANSFERASE INCREASED [None]
  - ALBUMIN GLOBULIN RATIO DECREASED [None]
